FAERS Safety Report 6058445-2 (Version None)
Quarter: 2009Q1

REPORT INFORMATION
  Report Type: 
  Country: None (occurrence: None)
  Receive Date: 20090127
  Receipt Date: 20090127
  Transmission Date: 20090719
  Serious: Yes (Other)
  Sender: FDA-Public Use
  Company Number: None

PATIENT
  Age: 73 Year
  Sex: Male
  Weight: 86.9 kg

DRUGS (14)
  1. TAXOTERE [Suspect]
     Indication: PROSTATE CANCER
     Dosage: 144 MG (IV)
     Route: 042
     Dates: start: 20071129, end: 20090106
  2. BEVACIZUMAB 15MG/KG [Suspect]
     Indication: PROSTATE CANCER
     Dosage: 1395 MG IV
     Route: 042
     Dates: start: 20071129, end: 20090106
  3. RAD001 2.5MG [Suspect]
     Indication: PROSTATE CANCER
     Dosage: 2.5 MG ORAL
     Route: 048
     Dates: start: 20071129, end: 20080501
  4. LESCOL [Concomitant]
  5. ROYAL JELLY [Concomitant]
  6. LEVOXYL [Concomitant]
  7. ALPHALIPOIC ACID [Concomitant]
  8. LOVAZA [Concomitant]
  9. MAXALT [Concomitant]
  10. LUPRON [Concomitant]
  11. MAGNESIUM SULFATE [Concomitant]
  12. ZOMETA [Concomitant]
  13. NEULASTA [Concomitant]
  14. NAMENDA [Concomitant]

REACTIONS (3)
  - CHEST PAIN [None]
  - COUGH [None]
  - PNEUMOTHORAX [None]
